FAERS Safety Report 7954708-1 (Version None)
Quarter: 2011Q4

REPORT INFORMATION
  Report Type: 
  Country: None (occurrence: None)
  Receive Date: 20111202
  Receipt Date: 20111125
  Transmission Date: 20120403
  Serious: Yes (Hospitalization, Other)
  Sender: FDA-Public Use
  Company Number: IT-ABBOTT-11P-083-0877524-00

PATIENT
  Sex: Male

DRUGS (9)
  1. HUMIRA [Suspect]
     Dosage: 2 VIALS
     Dates: start: 20110919, end: 20110919
  2. HUMIRA [Suspect]
     Dosage: 1 VIAL
     Dates: start: 20111030, end: 20111030
  3. EPARMEFOLIN [Concomitant]
     Indication: PRODUCT USED FOR UNKNOWN INDICATION
     Route: 050
  4. HUMIRA [Suspect]
     Indication: CROHN'S DISEASE
     Dosage: 4 VIALS
     Route: 058
     Dates: start: 20110905, end: 20110905
  5. HUMIRA [Suspect]
     Dosage: 1 VIAL
     Dates: start: 20111019, end: 20111019
  6. RABEPRAZOLE SODIUM [Concomitant]
     Indication: PRODUCT USED FOR UNKNOWN INDICATION
     Dosage: DAILY DOSE: 10MG
     Route: 048
  7. MESALAMINE [Concomitant]
     Indication: PRODUCT USED FOR UNKNOWN INDICATION
  8. HUMIRA [Suspect]
     Dosage: 1 VIAL
     Dates: start: 20111003, end: 20111003
  9. HUMIRA [Suspect]
     Dosage: 80MG
     Dates: end: 20111107

REACTIONS (9)
  - FATIGUE [None]
  - BLOOD CALCIUM ABNORMAL [None]
  - RENAL FAILURE [None]
  - MUSCULOSKELETAL STIFFNESS [None]
  - HYPOAESTHESIA [None]
  - MUSCLE RIGIDITY [None]
  - HYPOCALCAEMIA [None]
  - PARAESTHESIA [None]
  - ASTHENIA [None]
